FAERS Safety Report 12839063 (Version 1)
Quarter: 2016Q4

REPORT INFORMATION
  Report Type: Spontaneous
  Country: FR (occurrence: FR)
  Receive Date: 20161012
  Receipt Date: 20161012
  Transmission Date: 20170207
  Serious: Yes (Death, Hospitalization)
  Sender: FDA-Public Use
  Company Number: FR-009507513-1610FRA003445

PATIENT
  Age: 58 Year
  Sex: Male
  Weight: 81 kg

DRUGS (19)
  1. THALIDOMIDE [Suspect]
     Active Substance: THALIDOMIDE
     Indication: PLASMA CELL MYELOMA
     Dosage: 100 MG, QD
     Route: 048
     Dates: start: 20160826, end: 20160919
  2. KARDEGIC [Concomitant]
     Active Substance: ASPIRIN LYSINE
     Dosage: 75 MG, QAM
  3. BACTRIM [Concomitant]
     Active Substance: SULFAMETHOXAZOLE\TRIMETHOPRIM
     Indication: INFECTION PROPHYLAXIS
     Dosage: 1 TABLETX 3/WEEK
     Route: 048
     Dates: start: 201608
  4. TOPALGIC (TRAMADOL HYDROCHLORIDE) [Concomitant]
     Active Substance: TRAMADOL
     Indication: PAIN
     Dosage: 50 MG, QID
     Dates: start: 201608
  5. ZELITREX [Concomitant]
     Active Substance: VALACYCLOVIR HYDROCHLORIDE
     Indication: INFECTION PROPHYLAXIS
     Dosage: 1 TABLET, QD
     Route: 048
     Dates: start: 201608
  6. LIPTRUZET [Suspect]
     Active Substance: ATORVASTATIN CALCIUM\EZETIMIBE
     Indication: CORONARY ARTERY DISEASE
     Dosage: 1 DF, QD
     Route: 048
     Dates: end: 20160919
  7. VELCADE [Suspect]
     Active Substance: BORTEZOMIB
     Dosage: 2.5 MG, CYCLICAL (CYCLE 1: DAY 1, DAY 4, DAY 8 AND DAY 11)
     Route: 058
     Dates: start: 20160826, end: 20160905
  8. INNOHEP [Concomitant]
     Active Substance: TINZAPARIN SODIUM
     Dosage: 0.8 ML, QD
     Dates: start: 201608
  9. SPECIAFOLDINE [Concomitant]
     Active Substance: FOLIC ACID
     Indication: INFECTION PROPHYLAXIS
     Dosage: 5 MG X 3/WEEK
     Dates: start: 201608
  10. LYRICA [Suspect]
     Active Substance: PREGABALIN
     Dosage: 75 MG, BID
     Route: 048
     Dates: start: 2016, end: 20160919
  11. BUSPIRONE HYDROCHLORIDE. [Concomitant]
     Active Substance: BUSPIRONE HYDROCHLORIDE
     Dosage: 1/2 IN THE MORNING, MIDDAY, IN THE EVENING
  12. ESOMEPRAZOLE [Concomitant]
     Active Substance: ESOMEPRAZOLE
     Dosage: 1 DF, QPM
  13. LASILIX [Concomitant]
     Active Substance: FUROSEMIDE
     Dosage: 20 MG, QD
  14. CACIT VITAMINE D3 [Concomitant]
     Active Substance: CALCIUM CARBONATE\CHOLECALCIFEROL
     Dosage: 1 TABLET, BID
     Route: 048
  15. AMOXICILLIN. [Concomitant]
     Active Substance: AMOXICILLIN
  16. VELCADE [Suspect]
     Active Substance: BORTEZOMIB
     Dosage: 2.5 MG, CYCLICAL (CYCLE 2: DAY 1 AND 4)
     Route: 058
     Dates: start: 20160916, end: 20160919
  17. BISOPROLOL FUMARATE. [Suspect]
     Active Substance: BISOPROLOL FUMARATE
     Indication: CORONARY ARTERY DISEASE
     Dosage: 5 MG, QD
     Route: 048
     Dates: start: 20160604, end: 20160919
  18. LEVOTHYROX [Concomitant]
     Active Substance: LEVOTHYROXINE
     Dosage: 75 MICROGRAM, QAM
  19. ARANESP [Concomitant]
     Active Substance: DARBEPOETIN ALFA
     Indication: HAEMOGLOBIN DECREASED
     Dosage: 150 MICROGRAM, QW
     Dates: start: 201608

REACTIONS (3)
  - Malaise [Not Recovered/Not Resolved]
  - Oedema peripheral [Not Recovered/Not Resolved]
  - Sinus bradycardia [Fatal]

NARRATIVE: CASE EVENT DATE: 201609
